FAERS Safety Report 9264724 (Version 1)
Quarter: 2013Q2

REPORT INFORMATION
  Report Type: Spontaneous
  Country: US (occurrence: US)
  Receive Date: 20130501
  Receipt Date: 20130501
  Transmission Date: 20140414
  Serious: No
  Sender: FDA-Public Use
  Company Number: US-BIOGENIDEC-2013BI039171

PATIENT
  Age: 48 Year
  Sex: Female

DRUGS (8)
  1. TYSABRI [Suspect]
     Indication: MULTIPLE SCLEROSIS
     Route: 042
     Dates: start: 20120208
  2. ZYPREXA [Concomitant]
     Indication: PSYCHOTIC DISORDER
  3. BACLOFEN [Concomitant]
     Indication: MUSCLE SPASTICITY
  4. PRILOSEC [Concomitant]
     Indication: GASTROOESOPHAGEAL REFLUX DISEASE
  5. BLADDER MEDICATION (NOS) [Concomitant]
     Indication: INFECTION PROPHYLAXIS
  6. LAMICTAL [Concomitant]
     Indication: DEPRESSION
  7. ABILIFY [Concomitant]
     Indication: DEPRESSION
  8. LEXAPRO [Concomitant]
     Indication: DEPRESSION

REACTIONS (4)
  - Stress [Unknown]
  - Gastrooesophageal reflux disease [Recovered/Resolved]
  - Visual impairment [Not Recovered/Not Resolved]
  - Multiple sclerosis relapse [Recovered/Resolved]
